FAERS Safety Report 25254067 (Version 1)
Quarter: 2025Q2

REPORT INFORMATION
  Report Type: Spontaneous
  Country: US (occurrence: US)
  Receive Date: 20250430
  Receipt Date: 20250430
  Transmission Date: 20250717
  Serious: Yes (Hospitalization, Other)
  Sender: RANBAXY
  Company Number: US-SUN PHARMACEUTICAL INDUSTRIES LTD-2025R1-505372

PATIENT
  Age: 78 Year
  Sex: Male

DRUGS (2)
  1. CEFPODOXIME [Suspect]
     Active Substance: CEFPODOXIME
     Indication: Escherichia bacteraemia
     Route: 065
  2. METRONIDAZOLE [Suspect]
     Active Substance: METRONIDAZOLE
     Indication: Escherichia bacteraemia
     Route: 065

REACTIONS (1)
  - Portal vein thrombosis [Unknown]
